FAERS Safety Report 8334945-7 (Version None)
Quarter: 2012Q2

REPORT INFORMATION
  Report Type: 
  Country: None (occurrence: None)
  Receive Date: 20120503
  Receipt Date: 20120423
  Transmission Date: 20120825
  Serious: Yes (Hospitalization)
  Sender: FDA-Public Use
  Company Number: US-JNJFOC-20120410799

PATIENT
  Sex: Female
  Weight: 67.13 kg

DRUGS (3)
  1. REMICADE [Suspect]
     Indication: RHEUMATOID ARTHRITIS
     Route: 042
     Dates: start: 20110401, end: 20111001
  2. REMICADE [Suspect]
     Route: 042
     Dates: start: 20100301, end: 20100801
  3. REMICADE [Suspect]
     Route: 042
     Dates: start: 20010101, end: 20091001

REACTIONS (7)
  - LUNG NEOPLASM [None]
  - ABDOMINAL MASS [None]
  - ADENOCARCINOMA [None]
  - PRECANCEROUS CELLS PRESENT [None]
  - SQUAMOUS CELL CARCINOMA [None]
  - BLADDER OPERATION [None]
  - DYSURIA [None]
